FAERS Safety Report 6238007-4 (Version None)
Quarter: 2009Q2

REPORT INFORMATION
  Report Type: 
  Country: None (occurrence: None)
  Receive Date: 20090617
  Receipt Date: 20090602
  Transmission Date: 20091009
  Serious: Yes (Other)
  Sender: FDA-Public Use
  Company Number: 6051893

PATIENT
  Age: 68 Year
  Sex: Female

DRUGS (2)
  1. LEVOTHYROXINE SODIUM [Suspect]
     Indication: DRUG USE FOR UNKNOWN INDICATION
  2. ARIMIDEX [Suspect]
     Indication: BREAST CANCER
     Dosage: 1 DOSAGE FORMS (1 DOSAGE FORMS)

REACTIONS (1)
  - PANCREATITIS [None]
